FAERS Safety Report 15718848 (Version 1)
Quarter: 2018Q4

REPORT INFORMATION
  Report Type: Spontaneous
  Country: US (occurrence: US)
  Receive Date: 20181213
  Receipt Date: 20181213
  Transmission Date: 20190205
  Serious: No
  Sender: FDA-Public Use
  Company Number: US-PFIZER INC-2018508068

PATIENT
  Age: 59 Year
  Sex: Male
  Weight: 98.43 kg

DRUGS (15)
  1. LISINOPRIL. [Concomitant]
     Active Substance: LISINOPRIL
     Indication: HYPERTENSION
     Dosage: 20 MG, 2X/DAY
     Route: 048
  2. CLOPIDOGREL [Concomitant]
     Active Substance: CLOPIDOGREL BISULFATE
     Indication: ANTICOAGULANT THERAPY
     Dosage: 75 MG, 1X/DAY
     Route: 048
     Dates: start: 2013
  3. CHANTIX [Suspect]
     Active Substance: VARENICLINE TARTRATE
     Indication: SMOKING CESSATION THERAPY
     Dosage: 0.5 MG, UNK
     Dates: start: 20181201
  4. CARVEDILOL. [Concomitant]
     Active Substance: CARVEDILOL
     Indication: HEART RATE ABNORMAL
     Dosage: 12.5 MG, 2X/DAY
     Route: 048
  5. EZETIMIBE. [Concomitant]
     Active Substance: EZETIMIBE
     Indication: HYPERLIPIDAEMIA
     Dosage: 10 MG, 1X/DAY
     Route: 048
  6. NOVOLOG [Concomitant]
     Active Substance: INSULIN ASPART
     Indication: DIABETES MELLITUS
     Dosage: 12 IU, UNK, [EACH TIME EAT WITH MEALS]
     Route: 058
  7. METHOCARBAMOL. [Concomitant]
     Active Substance: METHOCARBAMOL
     Indication: MUSCLE SPASMS
     Dosage: 750 MG, AS NEEDED, [1 EVERY 8 HOURS]
     Route: 048
  8. TIZANIDINE. [Concomitant]
     Active Substance: TIZANIDINE
     Indication: INSOMNIA
  9. ROSUVASTATIN CALCIUM. [Concomitant]
     Active Substance: ROSUVASTATIN CALCIUM
     Indication: LIPIDS ABNORMAL
     Dosage: 10 MG, 1X/DAY
     Route: 048
     Dates: start: 201811
  10. CHANTIX [Suspect]
     Active Substance: VARENICLINE TARTRATE
     Dosage: 1 MG, DAILY, [2 TABLETS OF .5 MG TABLETS TOOK THEM AT THE SAME TIME]
     Route: 048
     Dates: start: 20181204
  11. METFORMIN [Concomitant]
     Active Substance: METFORMIN HYDROCHLORIDE
     Indication: DIABETES MELLITUS
     Dosage: 850 MG, 2X/DAY
     Route: 048
  12. AMLODIPINE [Concomitant]
     Active Substance: AMLODIPINE BESYLATE
     Indication: BLOOD PRESSURE ABNORMAL
     Dosage: 10 MG, 1X/DAY
     Route: 048
  13. TIZANIDINE. [Concomitant]
     Active Substance: TIZANIDINE
     Indication: HYPOTONIA
     Dosage: 2 MG, 1X/DAY, [AT NIGHT JUST BEFORE BEDTIME]
  14. ANORO ELLIPTA [Concomitant]
     Active Substance: UMECLIDINIUM BROMIDE\VILANTEROL TRIFENATATE
     Indication: DYSPNOEA
     Dosage: 1 DF, DAILY, [1 INHALATION DAILY FOR LUNGS AROUND 2:30 TO 3:00PM]
  15. INSULIN GLARGINE [Concomitant]
     Active Substance: INSULIN GLARGINE
     Indication: DIABETES MELLITUS
     Dosage: 37 IU, 1X/DAY, [AT NIGHT BEFORE BEDTIME]
     Route: 058

REACTIONS (2)
  - Intentional product misuse [Unknown]
  - Insomnia [Unknown]

NARRATIVE: CASE EVENT DATE: 20181204
